FAERS Safety Report 8291157-3 (Version None)
Quarter: 2012Q2

REPORT INFORMATION
  Report Type: 
  Country: None (occurrence: None)
  Receive Date: 20120417
  Receipt Date: 20120412
  Transmission Date: 20120825
  Serious: Yes (Hospitalization)
  Sender: FDA-Public Use
  Company Number: US-MERCK-1201USA02273

PATIENT
  Age: 67 Year
  Sex: Female

DRUGS (9)
  1. FOSAMAX [Suspect]
     Route: 048
     Dates: start: 20090201, end: 20100101
  2. FORTEO [Concomitant]
     Indication: OSTEOPOROSIS
     Route: 065
  3. CALCIUM (UNSPECIFIED) [Concomitant]
     Route: 065
     Dates: start: 19800101
  4. FOSAMAX PLUS D [Suspect]
     Indication: OSTEOPOROSIS
     Route: 048
     Dates: start: 20060801, end: 20090101
  5. SYNTHROID [Concomitant]
     Indication: HYPOTHYROIDISM
     Route: 065
     Dates: start: 19800101
  6. FOSAMAX [Suspect]
     Indication: OSTEOPOROSIS
     Route: 048
     Dates: start: 20000501, end: 20001001
  7. FOSAMAX [Suspect]
     Route: 048
     Dates: start: 20001101, end: 20060701
  8. VITAMINS (UNSPECIFIED) [Concomitant]
     Route: 065
     Dates: start: 19800101
  9. SELECTIVE ESTROGEN RECEPTOR MODULATOR (UNSPECIFIED) [Concomitant]
     Route: 065
     Dates: start: 19991101, end: 20070101

REACTIONS (10)
  - BLOOD CALCIUM DECREASED [None]
  - ROTATOR CUFF SYNDROME [None]
  - FEMUR FRACTURE [None]
  - ADVERSE EVENT [None]
  - ARTHROPATHY [None]
  - ANKLE FRACTURE [None]
  - VITAMIN D DEFICIENCY [None]
  - LOW TURNOVER OSTEOPATHY [None]
  - BLOOD CHOLESTEROL INCREASED [None]
  - APPENDIX DISORDER [None]
